FAERS Safety Report 9861061 (Version 1)
Quarter: 2014Q1

REPORT INFORMATION
  Report Type: Spontaneous
  Country: AU (occurrence: AU)
  Receive Date: 20140202
  Receipt Date: 20140202
  Transmission Date: 20141002
  Serious: No
  Sender: FDA-Public Use
  Company Number: AU-ALLERGAN-1303017US

PATIENT
  Sex: Female

DRUGS (2)
  1. BOTOX [Suspect]
     Indication: SKIN WRINKLING
     Dosage: 22 UNITS, SINGLE
     Route: 030
     Dates: start: 20121222, end: 20121222
  2. BOTOX [Suspect]
     Dosage: 27 UNITS, SINGLE
     Route: 030
     Dates: start: 20130125, end: 20130125

REACTIONS (2)
  - Contusion [Not Recovered/Not Resolved]
  - Drug ineffective [Unknown]
